FAERS Safety Report 9333158 (Version 1)
Quarter: 2013Q2

REPORT INFORMATION
  Report Type: Spontaneous
  Country: FR (occurrence: FR)
  Receive Date: 20130606
  Receipt Date: 20130606
  Transmission Date: 20140414
  Serious: Yes (Hospitalization)
  Sender: FDA-Public Use
  Company Number: FR-ELI_LILLY_AND_COMPANY-FR201305009209

PATIENT
  Age: 62 Year
  Sex: Male

DRUGS (5)
  1. EFIENT [Suspect]
     Indication: ACUTE MYOCARDIAL INFARCTION
     Dosage: 10 MG, QD
     Route: 048
     Dates: start: 20130312, end: 20130315
  2. KARDEGIC [Concomitant]
     Indication: ACUTE MYOCARDIAL INFARCTION
     Dosage: 75 MG, QD
     Route: 048
     Dates: start: 20130312
  3. BISOPROLOL [Concomitant]
     Indication: ACUTE MYOCARDIAL INFARCTION
     Dosage: UNK
     Route: 048
     Dates: start: 20130313, end: 20130318
  4. CRESTOR [Concomitant]
     Dosage: UNK
     Route: 048
     Dates: start: 20130312, end: 20130318
  5. RAMIPRIL [Concomitant]
     Indication: ACUTE MYOCARDIAL INFARCTION
     Dosage: UNK
     Route: 048
     Dates: start: 20130312, end: 20130318

REACTIONS (1)
  - Acute generalised exanthematous pustulosis [Recovering/Resolving]
